FAERS Safety Report 8019532-2 (Version None)
Quarter: 2012Q1

REPORT INFORMATION
  Report Type: 
  Country: None (occurrence: None)
  Receive Date: 20120103
  Receipt Date: 20111230
  Transmission Date: 20120608
  Serious: Yes (Hospitalization, Other)
  Sender: FDA-Public Use
  Company Number: PHNU2006AU01267

PATIENT
  Sex: Male

DRUGS (9)
  1. VALPROATE SODIUM [Concomitant]
     Dosage: 500 MG MANE, 1 G NOCTE
  2. FLUPHENAZINE [Concomitant]
     Dosage: 50 MG 2/5
     Route: 030
  3. DIPYRIDAMOLE [Concomitant]
  4. DIAZEPAM [Concomitant]
     Dosage: 5 MG, NOCTE
  5. CLOZARIL [Suspect]
     Indication: SCHIZOPHRENIA
     Dosage: UP TO 625 MG/DAY
     Route: 048
     Dates: start: 19970901, end: 20060308
  6. OLANZAPINE [Concomitant]
     Dosage: 10 MG MANE, 15 MG NOCTE
  7. SODIUM CHLORIDE [Concomitant]
     Dosage: 600 MG, BID
  8. CARVEDILOL [Concomitant]
     Dosage: 3.125 MG MANE, 6.25 MG NOCTE
  9. SIMVASTATIN [Concomitant]
     Dosage: 20 MG NOCTE

REACTIONS (13)
  - HEART RATE INCREASED [None]
  - CHEST DISCOMFORT [None]
  - CARDIOMEGALY [None]
  - MYOCARDITIS [None]
  - SCHIZOPHRENIA [None]
  - CARDIAC OUTPUT DECREASED [None]
  - MITRAL VALVE INCOMPETENCE [None]
  - MENTAL IMPAIRMENT [None]
  - HALLUCINATION, AUDITORY [None]
  - CARDIOMYOPATHY [None]
  - ECHOCARDIOGRAM ABNORMAL [None]
  - DYSPNOEA [None]
  - SYSTOLIC DYSFUNCTION [None]
